FAERS Safety Report 5590035-8 (Version None)
Quarter: 2008Q1

REPORT INFORMATION
  Report Type: 
  Country: None (occurrence: None)
  Receive Date: 20080114
  Receipt Date: 20080104
  Transmission Date: 20080703
  Serious: Yes (Other)
  Sender: FDA-Public Use
  Company Number: US-ELI_LILLY_AND_COMPANY-US200801000875

PATIENT
  Age: 46 Year
  Sex: Female

DRUGS (7)
  1. CYMBALTA [Suspect]
     Indication: PAIN
     Dosage: 30 MG, UNK
     Dates: start: 20070501
  2. CYMBALTA [Suspect]
     Dosage: 60 MG, UNK
  3. CYMBALTA [Suspect]
     Dosage: 1 D/F, UNK
     Dates: start: 20071201
  4. FERROUS SULFATE [Concomitant]
  5. ALBUTEROL [Concomitant]
     Route: 055
  6. ASPIRIN [Concomitant]
     Dosage: 325 MG, UNK
  7. LYRICA [Concomitant]
     Dosage: 75 MG, UNK

REACTIONS (4)
  - DRUG WITHDRAWAL SYNDROME [None]
  - FEELING ABNORMAL [None]
  - HIP ARTHROPLASTY [None]
  - MUSCLE FATIGUE [None]
